FAERS Safety Report 11993785 (Version 2)
Quarter: 2016Q1

REPORT INFORMATION
  Report Type: Spontaneous
  Country: CN (occurrence: CN)
  Receive Date: 20160203
  Receipt Date: 20160302
  Transmission Date: 20160526
  Serious: Yes (Other)
  Sender: FDA-Public Use
  Company Number: CN-009507513-1602CHN001382

PATIENT

DRUGS (1)
  1. SIMVASTATIN. [Suspect]
     Active Substance: SIMVASTATIN
     Indication: LIPIDS ABNORMAL
     Dosage: ONCE DAILY IN DOSES SELECTED ACCORDINGLY BASED ON THE ACTUAL CIRCUMSTANCES OF THA PATIENT
     Route: 048

REACTIONS (15)
  - Rhabdomyolysis [Unknown]
  - Cholestasis [Unknown]
  - Rash [Unknown]
  - Insomnia [Unknown]
  - Nausea [Unknown]
  - Pruritus [Unknown]
  - Transaminases increased [Unknown]
  - Dyspepsia [Unknown]
  - Vomiting [Unknown]
  - Hepatitis [Unknown]
  - Tachycardia [Unknown]
  - Constipation [Unknown]
  - Dizziness [Unknown]
  - Myalgia [Unknown]
  - Abdominal distension [Unknown]
